FAERS Safety Report 20720280 (Version 1)
Quarter: 2022Q2

REPORT INFORMATION
  Report Type: Spontaneous
  Country: US (occurrence: None)
  Receive Date: 20220418
  Receipt Date: 20220418
  Transmission Date: 20220720
  Serious: Yes (Hospitalization)
  Sender: FDA-Public Use
  Company Number: None

PATIENT
  Sex: Male

DRUGS (3)
  1. PYRIMETHAMINE [Suspect]
     Active Substance: PYRIMETHAMINE
     Indication: Toxoplasmosis
     Dosage: FREQUENCY : WEEKLY;?
     Route: 048
     Dates: start: 20220301
  2. ASPIRIN [Concomitant]
  3. COREG [Concomitant]
     Active Substance: CARVEDILOL

REACTIONS (2)
  - Hospitalisation [None]
  - Therapy interrupted [None]
